FAERS Safety Report 9471065 (Version 1)
Quarter: 2013Q3

REPORT INFORMATION
  Report Type: Report from Study
  Country: US (occurrence: US)
  Receive Date: 20130822
  Receipt Date: 20130822
  Transmission Date: 20140515
  Serious: Yes (Other)
  Sender: FDA-Public Use
  Company Number: US-BAYER-2013-101342

PATIENT
  Age: 53 Year
  Sex: Female

DRUGS (4)
  1. BETASERON [Suspect]
     Indication: MULTIPLE SCLEROSIS
     Dosage: 4 MIU, QOD
     Route: 058
     Dates: start: 20130802
  2. COUMADIN [Concomitant]
  3. OXYCONTIN [Concomitant]
     Indication: PAIN
  4. PRISTIQ [Concomitant]
     Indication: DEPRESSION

REACTIONS (4)
  - Postmenopausal haemorrhage [Unknown]
  - Depression [Not Recovered/Not Resolved]
  - Paranoia [Not Recovered/Not Resolved]
  - Injection site rash [Not Recovered/Not Resolved]
